FAERS Safety Report 6848722-7 (Version None)
Quarter: 2010Q3

REPORT INFORMATION
  Report Type: 
  Country: None (occurrence: None)
  Receive Date: 20100716
  Receipt Date: 20070907
  Transmission Date: 20110219
  Serious: No
  Sender: FDA-Public Use
  Company Number: US-PFIZER INC-2007075647

PATIENT
  Sex: Female
  Weight: 61.2 kg

DRUGS (10)
  1. CHANTIX [Suspect]
     Indication: SMOKING CESSATION THERAPY
     Dates: start: 20070818
  2. TRAMADOL [Concomitant]
  3. REQUIP [Concomitant]
  4. ATENOLOL [Concomitant]
  5. EVISTA [Concomitant]
  6. NITROGLYCERIN [Concomitant]
  7. NAPROXEN [Concomitant]
  8. SIMVASTATIN [Concomitant]
  9. DETROL LA [Concomitant]
  10. ACETYLSALICYLIC ACID [Concomitant]

REACTIONS (1)
  - NAUSEA [None]
